FAERS Safety Report 19530623 (Version 2)
Quarter: 2021Q3

REPORT INFORMATION
  Report Type: Report from Study
  Country: None (occurrence: US)
  Receive Date: 20210713
  Receipt Date: 20210729
  Transmission Date: 20211014
  Serious: Yes (Hospitalization, Other)
  Sender: FDA-Public Use
  Company Number: US-ABBVIE-21K-163-3988087-00

PATIENT
  Sex: Female

DRUGS (2)
  1. HUMIRA [Suspect]
     Active Substance: ADALIMUMAB
     Indication: PRODUCT USED FOR UNKNOWN INDICATION
     Dosage: CITRATE FREE
     Route: 058
  2. NYSTATIN. [Concomitant]
     Active Substance: NYSTATIN
     Indication: PRODUCT USED FOR UNKNOWN INDICATION

REACTIONS (11)
  - Renal failure [Unknown]
  - Mouth ulceration [Recovering/Resolving]
  - Crohn^s disease [Unknown]
  - Dyspnoea [Recovered/Resolved]
  - Laboratory test abnormal [Not Recovered/Not Resolved]
  - Nausea [Recovered/Resolved]
  - Oxygen saturation decreased [Unknown]
  - Dehydration [Recovered/Resolved]
  - Confusional state [Recovered/Resolved]
  - Nasal ulcer [Recovering/Resolving]
  - Hepatic enzyme increased [Unknown]
